FAERS Safety Report 5752537-0 (Version None)
Quarter: 2008Q2

REPORT INFORMATION
  Report Type: 
  Country: None (occurrence: None)
  Receive Date: 20080529
  Receipt Date: 20080520
  Transmission Date: 20081010
  Serious: Yes (Hospitalization, Other)
  Sender: FDA-Public Use
  Company Number: PHEH2008US04736

PATIENT
  Age: 58 Year
  Sex: Female
  Weight: 56.689 kg

DRUGS (1)
  1. RECLAST [Suspect]
     Indication: OSTEOPENIA
     Dosage: 5 MG, ONCE/SINGLE
     Dates: start: 20080519

REACTIONS (2)
  - ACUTE PHASE REACTION [None]
  - CEREBROVASCULAR ACCIDENT [None]
